FAERS Safety Report 8459718-6 (Version None)
Quarter: 2012Q2

REPORT INFORMATION
  Report Type: 
  Country: None (occurrence: None)
  Receive Date: 20120622
  Receipt Date: 20120613
  Transmission Date: 20120825
  Serious: Yes (Other)
  Sender: FDA-Public Use
  Company Number: US-JNJFOC-20120607008

PATIENT
  Sex: Female
  Weight: 59.42 kg

DRUGS (3)
  1. REMICADE [Suspect]
     Indication: CROHN'S DISEASE
     Dosage: DOSE:5 (UNITS UNSPECIFIED) ONCE EVERY 6-8 WEEKS. STARTED 3 YEARS AGO FROM THE DATE OF THIS REPORT.
     Route: 042
  2. HYDROCODONE [Concomitant]
     Indication: PAIN
     Route: 048
  3. REMICADE [Suspect]
     Route: 042
     Dates: start: 20120101

REACTIONS (5)
  - URTICARIA [None]
  - DRUG EFFECT DECREASED [None]
  - RASH ERYTHEMATOUS [None]
  - FISTULA [None]
  - SMALL INTESTINAL STENOSIS [None]
